FAERS Safety Report 6771670-8 (Version None)
Quarter: 2010Q2

REPORT INFORMATION
  Report Type: 
  Country: None (occurrence: None)
  Receive Date: 20100616
  Receipt Date: 20100603
  Transmission Date: 20101027
  Serious: Yes (Hospitalization, Other)
  Sender: FDA-Public Use
  Company Number: US-ELI_LILLY_AND_COMPANY-US200812003928

PATIENT
  Sex: Female

DRUGS (6)
  1. FORTEO [Suspect]
     Indication: OSTEOPOROSIS
     Dosage: 20 UG, DAILY (1/D)
     Dates: start: 20081111
  2. CALCIUM                                 /N/A/ [Concomitant]
  3. VITAMIN D [Concomitant]
  4. DOXYCYCLINE [Concomitant]
     Indication: BLEPHARITIS
  5. PROTONIX [Concomitant]
  6. PEPCID [Concomitant]
     Dosage: 20 MG, 2/D

REACTIONS (5)
  - FALL [None]
  - JOINT INJURY [None]
  - PAIN [None]
  - PELVIC FRACTURE [None]
  - UPPER LIMB FRACTURE [None]
